FAERS Safety Report 4722118-6 (Version None)
Quarter: 2005Q3

REPORT INFORMATION
  Report Type: 
  Country: None (occurrence: None)
  Receive Date: 20050722
  Receipt Date: 20040728
  Transmission Date: 20060218
  Serious: No
  Sender: FDA-Public Use
  Company Number: US-GLAXOSMITHKLINE-A0520087A

PATIENT
  Age: 66 Year
  Sex: Male

DRUGS (6)
  1. AVANDIA [Suspect]
     Dosage: 2MG AT NIGHT
     Route: 048
  2. EFFEXOR [Concomitant]
  3. LISINOPRIL [Concomitant]
  4. CRESTOR [Concomitant]
  5. METAGLIP [Concomitant]
  6. VALIUM [Concomitant]

REACTIONS (3)
  - AGGRESSION [None]
  - FATIGUE [None]
  - INTERMITTENT EXPLOSIVE DISORDER [None]
